FAERS Safety Report 9670361 (Version 2)
Quarter: 2013Q4

REPORT INFORMATION
  Report Type: Spontaneous
  Country: KR (occurrence: KR)
  Receive Date: 20131105
  Receipt Date: 20131105
  Transmission Date: 20140711
  Serious: Yes (Hospitalization)
  Sender: FDA-Public Use
  Company Number: KR-TAKEDA-TPA2013A07107

PATIENT
  Age: 76 Year
  Sex: Male

DRUGS (3)
  1. FEBURIC [Suspect]
     Indication: HYPERURICAEMIA
     Route: 048
     Dates: start: 20130624, end: 20130627
  2. ANTIHYPERTENSIVE AGENT [Concomitant]
     Dates: end: 20130627
  3. ANTIDIABETIC AGENT [Concomitant]
     Dates: end: 20130627

REACTIONS (2)
  - Shock [Recovering/Resolving]
  - Rash generalised [Recovering/Resolving]
